FAERS Safety Report 5873857-5 (Version None)
Quarter: 2008Q3

REPORT INFORMATION
  Report Type: 
  Country: None (occurrence: None)
  Receive Date: 20080903
  Receipt Date: 20080903
  Transmission Date: 20090109
  Serious: Yes (Life-Threatening)
  Sender: FDA-Public Use
  Company Number: None

PATIENT
  Age: 55 Year
  Sex: Female
  Weight: 65.7716 kg

DRUGS (2)
  1. LYRICA [Suspect]
     Indication: AMNESIA
     Dosage: LOWEST DOSE TWICE A DAY PO
     Route: 048
     Dates: start: 20050605, end: 20050606
  2. LYRICA [Suspect]
     Indication: FIBROMYALGIA
     Dosage: LOWEST DOSE TWICE A DAY PO
     Route: 048
     Dates: start: 20050605, end: 20050606

REACTIONS (3)
  - CONVERSION DISORDER [None]
  - PARANOIA [None]
  - SUICIDAL IDEATION [None]
